FAERS Safety Report 9549545 (Version 2)
Quarter: 2013Q4

REPORT INFORMATION
  Report Type: Spontaneous
  Country: US (occurrence: US)
  Receive Date: 20130924
  Receipt Date: 20131121
  Transmission Date: 20140711
  Serious: No
  Sender: FDA-Public Use
  Company Number: US-PFIZER INC-2013274503

PATIENT
  Age: 38 Year
  Sex: Female
  Weight: 126.98 kg

DRUGS (10)
  1. LYRICA [Suspect]
     Indication: FIBROMYALGIA
     Dosage: 75 MG, 2X/DAY
     Route: 048
     Dates: start: 2011, end: 2012
  2. LYRICA [Suspect]
     Dosage: 225 MG, 2X/DAY
     Route: 048
     Dates: start: 2012, end: 201308
  3. PERCOCET [Concomitant]
     Dosage: UNK
  4. XANAX [Concomitant]
     Dosage: UNK
  5. OMEPRAZOLE [Concomitant]
     Dosage: UNK
  6. TEGRETOL [Concomitant]
     Indication: EPILEPSY
     Dosage: UNK
  7. TEGRETOL [Concomitant]
     Indication: CONVULSION
  8. SEROQUEL [Concomitant]
     Dosage: UNK
  9. REQUIP [Concomitant]
     Dosage: UNK
  10. FLEXERIL [Concomitant]
     Dosage: UNK

REACTIONS (1)
  - Pain [Unknown]
